FAERS Safety Report 7617577-5 (Version None)
Quarter: 2011Q3

REPORT INFORMATION
  Report Type: 
  Country: None (occurrence: None)
  Receive Date: 20110718
  Receipt Date: 20110705
  Transmission Date: 20111222
  Serious: No
  Sender: FDA-Public Use
  Company Number: FR-JNJFOC-20110509664

PATIENT
  Sex: Female
  Weight: 51 kg

DRUGS (5)
  1. STELARA [Suspect]
     Indication: PRODUCT USED FOR UNKNOWN INDICATION
     Route: 058
     Dates: start: 20110301, end: 20110301
  2. BRICANYL [Concomitant]
  3. VENTOLIN HFA [Concomitant]
  4. STELARA [Suspect]
     Route: 058
     Dates: start: 20110401, end: 20110401
  5. NERISONE [Concomitant]

REACTIONS (2)
  - PYREXIA [None]
  - HEADACHE [None]
